FAERS Safety Report 9646570 (Version 1)
Quarter: 2013Q4

REPORT INFORMATION
  Report Type: Spontaneous
  Country: DE (occurrence: DE)
  Receive Date: 20131025
  Receipt Date: 20131025
  Transmission Date: 20140711
  Serious: Yes (Other)
  Sender: FDA-Public Use
  Company Number: DE-ROCHE-1293234

PATIENT
  Age: 35 Year
  Sex: Female

DRUGS (7)
  1. RITUXIMAB [Suspect]
     Indication: NON-HODGKIN^S LYMPHOMA
     Dosage: 375 MG/M2
     Route: 042
     Dates: start: 20120423, end: 20120521
  2. DECORTIN H [Suspect]
     Indication: NON-HODGKIN^S LYMPHOMA
     Route: 064
     Dates: start: 20120423, end: 20120521
  3. FORTECORTIN [Suspect]
     Indication: NON-HODGKIN^S LYMPHOMA
     Dosage: 16 MG/D TO 12 MG/D TO 4 MG/D
     Route: 048
     Dates: start: 20120405, end: 20120601
  4. PARACETAMOL [Concomitant]
     Route: 048
     Dates: start: 20120423, end: 20120521
  5. FENISTIL (GERMANY) [Concomitant]
     Indication: PROPHYLAXIS
     Route: 042
     Dates: start: 20120423, end: 20120521
  6. L-THYROXIN [Concomitant]
     Indication: HYPOTHYROIDISM
     Route: 048
     Dates: start: 20120423, end: 20120601
  7. RANITIC [Concomitant]
     Indication: PROPHYLAXIS
     Route: 048
     Dates: start: 20120423, end: 20120601

REACTIONS (2)
  - Maternal exposure during pregnancy [Unknown]
  - Oligohydramnios [Unknown]
